FAERS Safety Report 4405551-1 (Version None)
Quarter: 2004Q3

REPORT INFORMATION
  Report Type: 
  Country: None (occurrence: None)
  Receive Date: 20040723
  Receipt Date: 20030929
  Transmission Date: 20050211
  Serious: No
  Sender: FDA-Public Use
  Company Number: US-GLAXOSMITHKLINE-A0427864A

PATIENT
  Age: 65 Year
  Sex: Female

DRUGS (5)
  1. AVANDIA [Suspect]
     Dosage: 8MG PER DAY
     Route: 048
     Dates: end: 20030819
  2. INSULIN [Concomitant]
  3. GLUCOPHAGE [Concomitant]
  4. HYZAAR [Concomitant]
  5. DILTIAZEM [Concomitant]

REACTIONS (3)
  - FLUID RETENTION [None]
  - HYPOGLYCAEMIA [None]
  - WEIGHT INCREASED [None]
